FAERS Safety Report 7690767-1 (Version None)
Quarter: 2011Q3

REPORT INFORMATION
  Report Type: 
  Country: None (occurrence: None)
  Receive Date: 20110817
  Receipt Date: 20110817
  Transmission Date: 20111222
  Serious: No
  Sender: FDA-Public Use
  Company Number: None

PATIENT
  Sex: Male

DRUGS (8)
  1. VOTRIENT [Suspect]
     Indication: RENAL CANCER
     Dosage: 200 MG 3 QDAY PO
     Route: 048
     Dates: start: 20110601, end: 20110812
  2. TYLENOL-500 [Concomitant]
  3. AMLODIPINE [Concomitant]
  4. ALLOPURINOL [Concomitant]
  5. METOPROLOL [Concomitant]
  6. PROZAC [Concomitant]
  7. PLAVIX [Concomitant]
  8. ACETAMINOPHEN AND HYDROCODONE BITARTRATE [Concomitant]

REACTIONS (6)
  - HYPOAESTHESIA [None]
  - NAUSEA [None]
  - HAIR COLOUR CHANGES [None]
  - DIZZINESS [None]
  - FATIGUE [None]
  - DIARRHOEA [None]
